FAERS Safety Report 6465376-2 (Version None)
Quarter: 2009Q4

REPORT INFORMATION
  Report Type: 
  Country: None (occurrence: None)
  Receive Date: 20091201
  Receipt Date: 20090820
  Transmission Date: 20100525
  Serious: No
  Sender: FDA-Public Use
  Company Number: US-AMGEN-KDL288659

PATIENT
  Sex: Female

DRUGS (6)
  1. ENBREL [Suspect]
     Indication: PSORIASIS
     Route: 058
     Dates: start: 20080422
  2. FLUOCINOLONE ACETONIDE [Concomitant]
  3. DESONIDE [Concomitant]
  4. TRIAMCINOLONE ACETONIDE [Concomitant]
  5. HUMIRA [Concomitant]
  6. MACROBID [Concomitant]

REACTIONS (5)
  - BRONCHITIS [None]
  - KIDNEY INFECTION [None]
  - MALAISE [None]
  - MIGRAINE [None]
  - PSORIASIS [None]
